FAERS Safety Report 4851157-X (Version None)
Quarter: 2005Q4

REPORT INFORMATION
  Report Type: 
  Country: None (occurrence: None)
  Receive Date: 20051212
  Receipt Date: 20051130
  Transmission Date: 20060501
  Serious: Yes (Hospitalization)
  Sender: FDA-Public Use
  Company Number: SE-BRISTOL-MYERS SQUIBB COMPANY-13198759

PATIENT
  Age: 72 Year
  Sex: Female

DRUGS (17)
  1. PRAVACHOL [Suspect]
     Indication: HYPERLIPIDAEMIA
     Dates: end: 20040901
  2. NEURONTIN [Concomitant]
  3. ACETAMINOPHEN [Concomitant]
  4. VAGIFEM [Concomitant]
     Route: 067
  5. BEHEPAN [Concomitant]
  6. FLUANXOL [Concomitant]
  7. STESOLID [Concomitant]
  8. OVESTERIN [Concomitant]
     Dosage: DOSAGE FORM= MG/G
     Route: 067
  9. BECOTIDE INHALER [Concomitant]
  10. VENTOLIN [Concomitant]
     Route: 055
  11. TENORMIN [Concomitant]
  12. IMOVANE [Concomitant]
  13. ACETYLCYSTEINE [Concomitant]
  14. ESTRADIOL [Concomitant]
  15. IDEOS [Concomitant]
  16. PLAVIX [Concomitant]
  17. NOBLIGAN [Concomitant]

REACTIONS (1)
  - MYOSITIS [None]
